FAERS Safety Report 11179961 (Version 2)
Quarter: 2015Q2

REPORT INFORMATION
  Report Type: Spontaneous
  Country: US (occurrence: US)
  Receive Date: 20150611
  Receipt Date: 20150611
  Transmission Date: 20150821
  Serious: No
  Sender: FDA-Public Use
  Company Number: US-TEVA-547604USA

PATIENT
  Sex: Female

DRUGS (1)
  1. CAPECITABINE. [Suspect]
     Active Substance: CAPECITABINE
     Dosage: 2000 MILLIGRAM DAILY; 14 DAYS ON, WITH 7 DAYS OFF; RESTART (21 DAY CYCLE)
     Dates: start: 20141203

REACTIONS (6)
  - Oral discomfort [Recovering/Resolving]
  - Hypophagia [Recovering/Resolving]
  - Speech disorder [Recovering/Resolving]
  - Oropharyngeal swelling [Recovering/Resolving]
  - Throat irritation [Recovering/Resolving]
  - Stomatitis [Recovering/Resolving]

NARRATIVE: CASE EVENT DATE: 20150303
